FAERS Safety Report 6296714-1 (Version None)
Quarter: 2009Q3

REPORT INFORMATION
  Report Type: 
  Country: None (occurrence: None)
  Receive Date: 20090804
  Receipt Date: 20090724
  Transmission Date: 20100115
  Serious: Yes (Hospitalization)
  Sender: FDA-Public Use
  Company Number: AU-AVENTIS-200917505GDDC

PATIENT
  Age: 75 Year
  Sex: Female

DRUGS (5)
  1. LANTUS [Suspect]
     Route: 058
     Dates: start: 20050101
  2. AUTOPEN INSULIN INJECTION PEN [Suspect]
  3. ASASANTIN                          /00580301/ [Concomitant]
  4. ATACAND [Concomitant]
  5. COVERSYL                           /00790701/ [Concomitant]

REACTIONS (3)
  - INGUINAL HERNIA [None]
  - OSTEOARTHRITIS [None]
  - PAIN IN EXTREMITY [None]
